FAERS Safety Report 4352658-3 (Version None)
Quarter: 2004Q2

REPORT INFORMATION
  Report Type: 
  Country: None (occurrence: None)
  Receive Date: 20040429
  Receipt Date: 20040420
  Transmission Date: 20050107
  Serious: Yes (Other)
  Sender: FDA-Public Use
  Company Number: HQWYE550121APR04

PATIENT
  Sex: Female

DRUGS (4)
  1. EFFEXOR [Suspect]
     Dosage: SEE IMAGE
     Route: 048
     Dates: start: 20030101, end: 20030701
  2. EFFEXOR [Suspect]
     Dosage: SEE IMAGE
     Route: 048
     Dates: start: 20030701, end: 20030901
  3. PAROXETINE HCL [Suspect]
     Dosage: INCREASED DOSAGE
     Route: 048
     Dates: start: 20000201, end: 20020501
  4. PAROXETINE HCL [Suspect]
     Dosage: INCREASED DOSAGE
     Route: 048
     Dates: start: 20020501

REACTIONS (6)
  - CONDITION AGGRAVATED [None]
  - LEGAL PROBLEM [None]
  - PHYSICAL ASSAULT [None]
  - SUICIDAL IDEATION [None]
  - SUICIDE ATTEMPT [None]
  - THINKING ABNORMAL [None]
